FAERS Safety Report 8187956-9 (Version None)
Quarter: 2012Q1

REPORT INFORMATION
  Report Type: 
  Country: None (occurrence: None)
  Receive Date: 20120306
  Receipt Date: 20120227
  Transmission Date: 20120608
  Serious: Yes (Other)
  Sender: FDA-Public Use
  Company Number: JP-GLAXOSMITHKLINE-B0785274A

PATIENT

DRUGS (5)
  1. PAXIL [Suspect]
     Indication: PRODUCT USED FOR UNKNOWN INDICATION
     Dosage: 10MG PER DAY
     Route: 048
  2. PAXIL [Suspect]
     Dosage: 30MG PER DAY
     Route: 048
  3. PAXIL [Suspect]
     Dosage: 20MG PER DAY
     Route: 048
  4. DEZOLAM [Concomitant]
     Indication: PRODUCT USED FOR UNKNOWN INDICATION
     Dosage: 1MG PER DAY
     Route: 048
  5. SULPIRIDE [Concomitant]
     Indication: PRODUCT USED FOR UNKNOWN INDICATION
     Dosage: 50MG PER DAY
     Route: 048

REACTIONS (8)
  - SELF INJURIOUS BEHAVIOUR [None]
  - MENTAL DISORDER [None]
  - DRUG WITHDRAWAL SYNDROME [None]
  - NAUSEA [None]
  - INTENTIONAL SELF-INJURY [None]
  - DIZZINESS [None]
  - HEADACHE [None]
  - UNDERDOSE [None]
